FAERS Safety Report 26025654 (Version 1)
Quarter: 2025Q4

REPORT INFORMATION
  Report Type: Spontaneous
  Country: CN (occurrence: CN)
  Receive Date: 20251111
  Receipt Date: 20251111
  Transmission Date: 20260117
  Serious: Yes (Hospitalization, Other)
  Sender: DAIICHI
  Company Number: CN-DSJP-DS-2025-173563-CN

PATIENT
  Age: 87 Year
  Sex: Male
  Weight: 57 kg

DRUGS (2)
  1. EDOXABAN TOSYLATE [Suspect]
     Active Substance: EDOXABAN TOSYLATE
     Indication: Cerebrovascular accident
     Dosage: 60 MG, QD
     Route: 048
     Dates: start: 20250911, end: 20251024
  2. EDOXABAN TOSYLATE [Suspect]
     Active Substance: EDOXABAN TOSYLATE
     Indication: Prophylaxis
     Dosage: 30 MG, QD
     Route: 048

REACTIONS (4)
  - Ill-defined disorder [Unknown]
  - Cardiac failure [Unknown]
  - Faecal occult blood positive [Unknown]
  - Incorrect dose administered [Recovered/Resolved]

NARRATIVE: CASE EVENT DATE: 20250911
